FAERS Safety Report 5409487-9 (Version None)
Quarter: 2007Q3

REPORT INFORMATION
  Report Type: 
  Country: None (occurrence: None)
  Receive Date: 20070807
  Receipt Date: 20070807
  Transmission Date: 20080115
  Serious: Yes (Hospitalization)
  Sender: FDA-Public Use
  Company Number: None

PATIENT
  Age: 84 Year
  Sex: Female

DRUGS (8)
  1. METHOTREXATE [Suspect]
     Indication: RHEUMATOID ARTHRITIS
     Dosage: 10 MG DAILY PO
     Route: 048
  2. LASIX [Concomitant]
  3. PREVACID [Concomitant]
  4. PREDNISONE TAB [Concomitant]
  5. LOTREL [Concomitant]
  6. ATENOLOL [Concomitant]
  7. FOLIC ACID [Concomitant]
  8. VITAMIN CAP [Concomitant]

REACTIONS (8)
  - DIARRHOEA [None]
  - DYSPNOEA [None]
  - ELECTROCARDIOGRAM ABNORMAL [None]
  - HYPERKALAEMIA [None]
  - HYPONATRAEMIA [None]
  - MULTI-ORGAN DISORDER [None]
  - RENAL FAILURE ACUTE [None]
  - SEPTIC SHOCK [None]
